FAERS Safety Report 5367713-9 (Version None)
Quarter: 2007Q2

REPORT INFORMATION
  Report Type: 
  Country: None (occurrence: None)
  Receive Date: 20070622
  Receipt Date: 20070312
  Transmission Date: 20071010
  Serious: No
  Sender: FDA-Public Use
  Company Number: US-ASTRAZENECA-2007UW04729

PATIENT
  Sex: Female

DRUGS (2)
  1. PULMICORT [Suspect]
     Indication: ASTHMA
     Route: 055
  2. PULMICORT [Suspect]
     Route: 055
     Dates: start: 20060801

REACTIONS (2)
  - CONTUSION [None]
  - EMOTIONAL DISORDER [None]
